FAERS Safety Report 13852144 (Version 1)
Quarter: 2017Q3

REPORT INFORMATION
  Report Type: Spontaneous
  Country: US (occurrence: US)
  Receive Date: 20170809
  Receipt Date: 20170809
  Transmission Date: 20171127
  Serious: Yes (Other)
  Sender: FDA-Public Use
  Company Number: US-ROCHE-773442

PATIENT
  Age: 96 Year
  Sex: Female

DRUGS (18)
  1. ACETAMINOPHEN. [Concomitant]
     Active Substance: ACETAMINOPHEN
     Indication: PAIN
     Dosage: EVERY 04-06 HOURS AS NEEDED
     Route: 048
  2. OMEPRAZOLE. [Concomitant]
     Active Substance: OMEPRAZOLE
     Dosage: TWO CAPSULES ONCE DAILY
     Route: 048
  3. SENNA-GEN TABLETS [Concomitant]
     Indication: CONSTIPATION
     Route: 048
  4. PROMETHAZINE [Concomitant]
     Active Substance: PROMETHAZINE\PROMETHAZINE HYDROCHLORIDE
     Indication: VOMITING
     Dosage: AS NEEDED EVERY 04-06 HOURS
     Route: 048
  5. MILK OF MAGNESIA [Concomitant]
     Active Substance: MAGNESIUM HYDROXIDE
     Indication: CONSTIPATION
     Dosage: 15-30 CC AS NEEDED
     Route: 048
  6. BISAC-EVAC [Concomitant]
     Active Substance: BISACODYL
     Indication: CONSTIPATION
     Dosage: AS NEEDED
     Route: 054
  7. NAPROXEN SODIUM. [Concomitant]
     Active Substance: NAPROXEN SODIUM
     Indication: PAIN
     Dosage: AS NEEDED
     Route: 048
  8. BACITRACIN. [Concomitant]
     Active Substance: BACITRACIN
     Route: 065
  9. BONIVA [Suspect]
     Active Substance: IBANDRONATE SODIUM
     Indication: OSTEOPOROSIS
     Route: 048
     Dates: start: 20071003, end: 2009
  10. AZOPT [Concomitant]
     Active Substance: BRINZOLAMIDE
     Dosage: EYE DROPS; I DROP TO EACH EYE TWICE DAILY
     Route: 065
  11. GLUCOSAMINE SULFATE [Concomitant]
     Active Substance: GLUCOSAMINE SULFATE
     Route: 048
  12. ACETAMINOPHEN AND CODEINE [Concomitant]
     Active Substance: ACETAMINOPHEN\CODEINE PHOSPHATE
     Indication: PAIN
     Dosage: 1-2 DOSE FORM EVERY 04 HOURS AS NEEDED
     Route: 048
  13. BENICAR [Concomitant]
     Active Substance: OLMESARTAN MEDOXOMIL
     Dosage: TAKEN EVERY MORNING
     Route: 048
  14. CALCIUM CARBONATE. [Concomitant]
     Active Substance: CALCIUM CARBONATE
     Route: 048
  15. ASPIRIN. [Concomitant]
     Active Substance: ASPIRIN
     Route: 048
  16. DOCUSATE SODIUM. [Concomitant]
     Active Substance: DOCUSATE SODIUM
     Dosage: ONE CAPSULE AT BEDTIME
     Route: 048
  17. FOSAMAX [Suspect]
     Active Substance: ALENDRONATE SODIUM
     Indication: OSTEOPOROSIS
     Route: 048
     Dates: start: 2001, end: 2006
  18. LUMIGAN [Concomitant]
     Active Substance: BIMATOPROST
     Dosage: 1 DROP INTO EACH EYE AT BEDTIME
     Route: 065

REACTIONS (1)
  - Osteonecrosis [Not Recovered/Not Resolved]

NARRATIVE: CASE EVENT DATE: 200811
